FAERS Safety Report 15232099 (Version 3)
Quarter: 2020Q1

REPORT INFORMATION
  Report Type: Spontaneous
  Country: US (occurrence: US)
  Receive Date: 20180802
  Receipt Date: 20200127
  Transmission Date: 20200409
  Serious: Yes (Other)
  Sender: FDA-Public Use
  Company Number: US-PFIZER INC-2018308722

PATIENT
  Age: 22 Year
  Sex: Female

DRUGS (2)
  1. HYDROCORTISONE/NEOMYCIN SULFATE/POLYMYXIN B SULFATE [Suspect]
     Active Substance: HYDROCORTISONE\NEOMYCIN SULFATE\POLYMYXIN B SULFATE
     Indication: OTITIS EXTERNA
  2. HYDROCORTISONE/NEOMYCIN SULFATE/POLYMYXIN B SULFATE [Suspect]
     Active Substance: HYDROCORTISONE\NEOMYCIN SULFATE\POLYMYXIN B SULFATE
     Indication: LABYRINTHITIS
     Dosage: UNK

REACTIONS (11)
  - Deafness [Not Recovered/Not Resolved]
  - Ear pain [Unknown]
  - Tinnitus [Not Recovered/Not Resolved]
  - Insomnia [Unknown]
  - Tympanic membrane disorder [Unknown]
  - Hypersensitivity [Unknown]
  - Disturbance in attention [Unknown]
  - Wrong product administered [Unknown]
  - Inflammation [Unknown]
  - Ear discomfort [Unknown]
  - Ear swelling [Unknown]
